FAERS Safety Report 18191264 (Version 1)
Quarter: 2020Q3

REPORT INFORMATION
  Report Type: Spontaneous
  Country: US (occurrence: US)
  Receive Date: 20200824
  Receipt Date: 20200824
  Transmission Date: 20201103
  Serious: No
  Sender: FDA-Public Use
  Company Number: None

PATIENT
  Age: 37 Year
  Sex: Male
  Weight: 81.4 kg

DRUGS (6)
  1. REMDESIVIR. [Suspect]
     Active Substance: REMDESIVIR
     Indication: COVID-19
     Dosage: ?          OTHER FREQUENCY:ONCE;?
     Route: 042
     Dates: start: 20200816, end: 20200816
  2. ENOXAPARIN [Concomitant]
     Active Substance: ENOXAPARIN
     Dates: start: 20200814, end: 20200818
  3. REMDESIVIR. [Suspect]
     Active Substance: REMDESIVIR
     Indication: COVID-19
     Route: 042
     Dates: start: 20200817, end: 20200818
  4. AZITHROMYCIN ANHYDROUS. [Concomitant]
     Active Substance: AZITHROMYCIN ANHYDROUS
     Dates: start: 20200814, end: 20200818
  5. CEFTRIAXONE. [Concomitant]
     Active Substance: CEFTRIAXONE
     Dates: start: 20200815, end: 20200818
  6. GUAIFENESIN?CODEINE [Concomitant]
     Dates: start: 20200816, end: 20200818

REACTIONS (2)
  - Alanine aminotransferase increased [None]
  - Therapy cessation [None]

NARRATIVE: CASE EVENT DATE: 20200818
